FAERS Safety Report 4350087-X (Version None)
Quarter: 2004Q2

REPORT INFORMATION
  Report Type: 
  Country: None (occurrence: None)
  Receive Date: 20040429
  Receipt Date: 20040426
  Transmission Date: 20050107
  Serious: Yes (Life-Threatening, Hospitalization)
  Sender: FDA-Public Use
  Company Number: US-GLAXOSMITHKLINE-A0508560A

PATIENT
  Age: 47 Year
  Sex: Female
  Weight: 64.1 kg

DRUGS (14)
  1. LITHIUM CARBONATE [Suspect]
     Indication: DEPRESSION
     Dosage: 300MG TWICE PER DAY
     Route: 065
     Dates: start: 20040309
  2. ASPIRIN [Suspect]
     Dosage: 81MG PER DAY
     Route: 048
  3. PEG-INTRON [Suspect]
     Indication: HEPATITIS C
     Dosage: 96MCG WEEKLY
     Route: 058
     Dates: start: 20040212, end: 20040322
  4. REBETOL [Suspect]
     Indication: HEPATITIS C
     Dosage: 800MG PER DAY
     Route: 048
     Dates: start: 20040212, end: 20040322
  5. VIOXX [Suspect]
     Dosage: 25MG PER DAY
     Route: 048
  6. ALTACE [Suspect]
     Dosage: 10MG PER DAY
     Route: 048
  7. ESCITALOPRAM [Concomitant]
     Dosage: 10MG PER DAY
     Route: 048
  8. PROTONIX [Concomitant]
     Dosage: 40MG PER DAY
     Route: 048
  9. NEURONTIN [Concomitant]
     Dosage: 100MG THREE TIMES PER DAY
     Route: 048
  10. CLONAZEPAM [Concomitant]
     Dosage: 1MG TWICE PER DAY
     Route: 048
  11. HYDROCODONE [Concomitant]
     Route: 048
  12. PHENERGAN [Concomitant]
     Dosage: 25MG AS REQUIRED
     Route: 048
  13. GEODON [Concomitant]
     Dosage: 40MG PER DAY
     Route: 048
  14. ZYPREXA [Concomitant]
     Dosage: 15MG PER DAY
     Route: 048

REACTIONS (9)
  - AGITATION [None]
  - ANAEMIA [None]
  - ATAXIA [None]
  - DEPRESSION [None]
  - DRUG TOXICITY [None]
  - HAEMATOCRIT DECREASED [None]
  - JAUNDICE [None]
  - MENTAL STATUS CHANGES [None]
  - THERAPEUTIC AGENT TOXICITY [None]
